FAERS Safety Report 11921290 (Version 1)
Quarter: 2016Q1

REPORT INFORMATION
  Report Type: Report from Study
  Country: KR (occurrence: KR)
  Receive Date: 20160115
  Receipt Date: 20160115
  Transmission Date: 20160526
  Serious: Yes (Hospitalization)
  Sender: FDA-Public Use
  Company Number: KR-ELI_LILLY_AND_COMPANY-KR201601000899

PATIENT
  Age: 35 Year
  Sex: Male
  Weight: 77.5 kg

DRUGS (14)
  1. PETHIDINE [Concomitant]
     Active Substance: MEPERIDINE
     Dosage: UNK
     Dates: start: 20160104, end: 20160104
  2. PACLITAXEL. [Concomitant]
     Active Substance: PACLITAXEL
     Indication: ADENOCARCINOMA GASTRIC
     Dosage: UNK
     Dates: start: 20151215, end: 20151215
  3. IRCODIN [Concomitant]
     Indication: ABDOMINAL PAIN
     Dosage: UNK, PRN
     Dates: start: 20150509, end: 20160104
  4. ASCORBIC ACID. [Concomitant]
     Active Substance: ASCORBIC ACID
     Indication: NUTRITIONAL SUPPLEMENTATION
     Dosage: UNK
     Dates: start: 20151229, end: 20151229
  5. LYRICA [Concomitant]
     Active Substance: PREGABALIN
     Indication: NEUROPATHY PERIPHERAL
     Dosage: UNK
  6. XATRAL [Concomitant]
     Active Substance: ALFUZOSIN
     Indication: HYDRONEPHROSIS
     Dosage: UNK
     Dates: start: 20150821
  7. TARGIN [Concomitant]
     Active Substance: NALOXONE HYDROCHLORIDE\OXYCODONE HYDROCHLORIDE
     Indication: ABDOMINAL PAIN
     Dosage: UNK, PRN
     Dates: start: 20150510, end: 20160104
  8. CYRAMZA [Suspect]
     Active Substance: RAMUCIRUMAB
     Indication: ADENOCARCINOMA GASTRIC
     Dosage: 8 MG/KG, 2/M
     Route: 042
     Dates: start: 20150902, end: 20151215
  9. PETHIDINE [Concomitant]
     Active Substance: MEPERIDINE
     Indication: PAIN PROPHYLAXIS
     Dosage: UNK
     Dates: start: 20151228, end: 20151228
  10. BEECOM HEXA [Concomitant]
     Indication: NUTRITIONAL SUPPLEMENTATION
     Dosage: UNK
     Dates: start: 20151229, end: 20151229
  11. COMBIFLEX                          /07403001/ [Concomitant]
     Indication: NUTRITIONAL SUPPLEMENTATION
     Dosage: UNK
     Dates: start: 20160104
  12. FREAMINE III NOS [Concomitant]
     Active Substance: AMINO ACIDS
     Indication: NUTRITIONAL SUPPLEMENTATION
     Dosage: UNK
     Dates: start: 20151229, end: 20151229
  13. MORPHINE SULFATE. [Concomitant]
     Active Substance: MORPHINE SULFATE
     Indication: ABDOMINAL PAIN
     Dosage: UNK, PRN
     Dates: start: 20160104
  14. TAMIPOOL [Concomitant]
     Active Substance: VITAMINS
     Indication: NUTRITIONAL SUPPLEMENTATION
     Dosage: UNK
     Dates: start: 20160104

REACTIONS (1)
  - Abdominal pain [Not Recovered/Not Resolved]

NARRATIVE: CASE EVENT DATE: 20160102
